FAERS Safety Report 8223016-6 (Version None)
Quarter: 2012Q1

REPORT INFORMATION
  Report Type: 
  Country: None (occurrence: None)
  Receive Date: 20120320
  Receipt Date: 20120316
  Transmission Date: 20120608
  Serious: Yes (Hospitalization)
  Sender: FDA-Public Use
  Company Number: JP-B.I. PHARMACEUTICALS,INC./RIDGEFIELD-2012-BP-05006NB

PATIENT
  Sex: Female

DRUGS (5)
  1. ETICALM [Concomitant]
     Indication: SLEEP DISORDER
     Route: 048
     Dates: end: 20120216
  2. PRAMIPEXOLE DIHYDROCHLORIDE [Suspect]
     Indication: RESTLESS LEGS SYNDROME
     Dosage: 0.125 MG
     Route: 048
     Dates: start: 20110105, end: 20120216
  3. BROTIZOLAM [Concomitant]
     Indication: INSOMNIA
     Route: 048
     Dates: end: 20120216
  4. REMITCH [Suspect]
     Indication: PRURITUS
     Dosage: 10 MCG
     Route: 048
     Dates: start: 20120102, end: 20120216
  5. AZEPIT [Concomitant]
     Indication: PRURITUS
     Route: 048
     Dates: end: 20120216

REACTIONS (2)
  - SOMATIC HALLUCINATION [None]
  - ILLUSION [None]
